FAERS Safety Report 6126893-8 (Version None)
Quarter: 2009Q1

REPORT INFORMATION
  Report Type: 
  Country: None (occurrence: None)
  Receive Date: 20090320
  Receipt Date: 20080916
  Transmission Date: 20090719
  Serious: No
  Sender: FDA-Public Use
  Company Number: US-ABBOTT-08P-163-0477158-00

PATIENT
  Sex: Female
  Weight: 57.658 kg

DRUGS (3)
  1. ERYTHROMYCIN [Suspect]
     Indication: INFECTION
     Dates: start: 20030101, end: 20030101
  2. LEVOTHYROXINE [Concomitant]
     Indication: HYPOTHYROIDISM
     Route: 048
  3. TEGRETOL [Concomitant]
     Indication: CONVULSION
     Route: 048

REACTIONS (1)
  - URTICARIA [None]
